FAERS Safety Report 8912678 (Version 1)
Quarter: 2012Q4

REPORT INFORMATION
  Report Type: 
  Country: GB (occurrence: GB)
  Receive Date: 20121116
  Receipt Date: 20121116
  Transmission Date: 20130627
  Serious: Yes (Life-Threatening, Other)
  Sender: FDA-Public Use
  Company Number: GB-JHP PHARMACEUTICALS, LLC-JHP201200523

PATIENT
  Age: 59 Year
  Sex: Male

DRUGS (5)
  1. ADRENALIN CHLORIDE [Suspect]
     Indication: CARDIAC ARREST
     Dosage: 4 mg, UNK
     Route: 042
  2. LISINOPRIL [Concomitant]
  3. FENTANYL [Concomitant]
     Indication: INDUCTION OF ANAESTHESIA
     Dosage: 100 mcg
  4. PROPOFOL [Concomitant]
     Indication: INDUCTION OF ANAESTHESIA
     Dosage: 180 mg, UNK
  5. SUXAMETHONIUM [Concomitant]
     Indication: INDUCTION OF ANAESTHESIA
     Dosage: 100 mg, UNK

REACTIONS (1)
  - Drug resistance [Recovered/Resolved]
